FAERS Safety Report 9418111 (Version 1)
Quarter: 2013Q3

REPORT INFORMATION
  Report Type: Spontaneous
  Country: US (occurrence: US)
  Receive Date: 20130724
  Receipt Date: 20130724
  Transmission Date: 20140515
  Serious: Yes (Death, Other)
  Sender: FDA-Public Use
  Company Number: US-TEVA-419826USA

PATIENT
  Age: 36 Year
  Sex: Male

DRUGS (11)
  1. BUPRENORPHINE [Suspect]
  2. AMPHETAMINES [Concomitant]
  3. BARBITURATES [Concomitant]
  4. BENZODIAZEPINE DERIVATIVES [Concomitant]
  5. METHADONE [Concomitant]
  6. OPIATES [Concomitant]
  7. PHENCYCLIDINE [Concomitant]
  8. DEXTROPROPOXYPHENE [Concomitant]
  9. CANNABIS SATIVA [Concomitant]
  10. COCAINE [Concomitant]
  11. ETHANOL [Concomitant]

REACTIONS (1)
  - Drowning [Fatal]
